FAERS Safety Report 12567318 (Version 1)
Quarter: 2016Q3

REPORT INFORMATION
  Report Type: Spontaneous
  Country: US (occurrence: US)
  Receive Date: 20160718
  Receipt Date: 20160718
  Transmission Date: 20161109
  Serious: No
  Sender: FDA-Public Use
  Company Number: US-ASTELLAS-2016US019558

PATIENT
  Age: 74 Year
  Sex: Female

DRUGS (1)
  1. MYRBETRIQ [Suspect]
     Active Substance: MIRABEGRON
     Indication: PRODUCT USED FOR UNKNOWN INDICATION
     Route: 065
     Dates: start: 201605

REACTIONS (3)
  - Vulvovaginal mycotic infection [Unknown]
  - Vulvovaginal pruritus [Unknown]
  - Vulvovaginal discomfort [Unknown]

NARRATIVE: CASE EVENT DATE: 201605
